FAERS Safety Report 8346763-4 (Version None)
Quarter: 2012Q2

REPORT INFORMATION
  Report Type: 
  Country: None (occurrence: None)
  Receive Date: 20120509
  Receipt Date: 20120501
  Transmission Date: 20120825
  Serious: Yes (Other)
  Sender: FDA-Public Use
  Company Number: US-ABBOTT-12P-163-0921732-00

PATIENT
  Sex: Female
  Weight: 94.432 kg

DRUGS (4)
  1. HUMIRA [Suspect]
     Indication: CROHN'S DISEASE
     Route: 058
     Dates: start: 20110919, end: 20120224
  2. ALBUTEROL [Concomitant]
     Indication: ASTHMA
  3. OXYCODONE HCL [Concomitant]
     Indication: CROHN'S DISEASE
  4. TRAZODONE HCL [Concomitant]
     Indication: ANXIETY

REACTIONS (6)
  - ASTHENIA [None]
  - CEREBRAL SARCOIDOSIS [None]
  - NUCLEAR MAGNETIC RESONANCE IMAGING ABNORMAL [None]
  - PAIN IN EXTREMITY [None]
  - MULTIPLE SCLEROSIS [None]
  - NECK PAIN [None]
